FAERS Safety Report 25918528 (Version 1)
Quarter: 2025Q4

REPORT INFORMATION
  Report Type: Spontaneous
  Country: GB (occurrence: GB)
  Receive Date: 20251014
  Receipt Date: 20251014
  Transmission Date: 20260117
  Serious: Yes (Death, Disabling, Other)
  Sender: RANBAXY
  Company Number: None

PATIENT
  Age: 82 Year
  Sex: Male
  Weight: 85 kg

DRUGS (25)
  1. SERTRALINE [Suspect]
     Active Substance: SERTRALINE HYDROCHLORIDE
     Indication: Depressed mood
     Dosage: TAKE ONE DAILY
     Route: 065
     Dates: start: 20250711, end: 20250731
  2. TRIMETHOPRIM [Concomitant]
     Active Substance: TRIMETHOPRIM
     Indication: Ill-defined disorder
     Dosage: TAKE ONE TWICE DAILY FOR 3 DAYS, THEN ONE TABLE...
     Route: 065
     Dates: start: 20250711, end: 20250714
  3. MUPIROCIN [Concomitant]
     Active Substance: MUPIROCIN
     Indication: Ill-defined disorder
     Dosage: APPLY 3 TIMES/DAY
     Route: 065
     Dates: start: 20250717, end: 20250722
  4. FOSFOMYCIN [Concomitant]
     Active Substance: FOSFOMYCIN
     Indication: Ill-defined disorder
     Dosage: ONE TAKEN ON AN EMPTY STOMACH (ABOUT 2-3 HOURS ...
     Route: 065
     Dates: start: 20250717, end: 20250718
  5. ACETAMINOPHEN [Concomitant]
     Active Substance: ACETAMINOPHEN
     Indication: Ill-defined disorder
     Dosage: TAKE 1 OR 2 UPTO 4 TIMES/DAY WHEN NEEDED
     Route: 065
     Dates: start: 20250415, end: 20250916
  6. BUMETANIDE [Concomitant]
     Active Substance: BUMETANIDE
     Indication: Ill-defined disorder
     Dosage: TAKE THREE EACH MORNING - CAN BE DISSOLVED IN S...
     Route: 065
     Dates: start: 20250602
  7. Conotrane [Concomitant]
     Indication: Ill-defined disorder
     Dosage: APPLY AS NEEDED
     Route: 065
     Dates: start: 20250902
  8. Zerobase [Concomitant]
     Indication: Ill-defined disorder
     Dosage: APPLY WHEN NEEDED AS A MOISTURISER
     Route: 065
     Dates: start: 20250902
  9. THICK + EASY CLEAR [Concomitant]
     Indication: Ill-defined disorder
     Dosage: USE AS DIRECTED
     Route: 065
     Dates: start: 20250916, end: 20250919
  10. CLOTRIMAZOLE [Concomitant]
     Active Substance: CLOTRIMAZOLE
     Indication: Ill-defined disorder
     Dosage: APPLY TWO TO THREE TIMES A DAY, TO TREAT FUNGAL...
     Route: 065
     Dates: start: 20240607, end: 20250919
  11. Laxido Apelsin [Concomitant]
     Indication: Ill-defined disorder
     Dosage: ONE TO TWO SACHETS DAILY WHEN REQUIRED
     Route: 065
     Dates: start: 20240607, end: 20250919
  12. NITROGLYCERIN [Concomitant]
     Active Substance: NITROGLYCERIN
     Indication: Ill-defined disorder
     Dosage: SPRAY ONE OR TWO DOSES UNDER THE TONGUE AND CLO...
     Route: 065
     Dates: start: 20241107, end: 20250919
  13. DIGOXIN [Concomitant]
     Active Substance: DIGOXIN
     Indication: Ill-defined disorder
     Dosage: TAKE ONE DAILY
     Route: 065
     Dates: start: 20250113, end: 20250916
  14. FINASTERIDE [Concomitant]
     Active Substance: FINASTERIDE
     Indication: Ill-defined disorder
     Dosage: TAKE ONE DAILY
     Route: 065
     Dates: start: 20250113, end: 20250722
  15. GLICLAZIDE [Concomitant]
     Active Substance: GLICLAZIDE
     Indication: Ill-defined disorder
     Dosage: TAKE ONE TABLET WITH BREAKFAST TO CONTROL DIABETES
     Route: 065
     Dates: start: 20250113, end: 20250916
  16. DILTIAZEM HYDROCHLORIDE [Concomitant]
     Active Substance: DILTIAZEM HYDROCHLORIDE
     Indication: Ill-defined disorder
     Dosage: TAKE ONE TABLETS TWICE DAILY
     Route: 065
     Dates: start: 20250113, end: 20250916
  17. MIRTAZAPINE [Concomitant]
     Active Substance: MIRTAZAPINE
     Indication: Ill-defined disorder
     Dosage: TAKE ONE IN EVENING
     Route: 065
     Dates: start: 20250128, end: 20250919
  18. GLYCOPYRROLATE [Concomitant]
     Active Substance: GLYCOPYRROLATE
     Indication: Ill-defined disorder
     Dosage: 200MCG S/C EVERY 4 HOURS OR 600MCG TO 1200MCG V...
     Route: 065
     Dates: start: 20250515, end: 20250919
  19. HALOPERIDOL [Concomitant]
     Active Substance: HALOPERIDOL
     Indication: Ill-defined disorder
     Dosage: 0.5 - 1MG SC IMMEDIATELY THEN 1.5MG/24H VIA SYR...
     Route: 065
     Dates: start: 20250515, end: 20250919
  20. MIDAZOLAM [Concomitant]
     Active Substance: MIDAZOLAM
     Indication: Ill-defined disorder
     Dosage: 2.5MG TO 5MG S/C EVERY 1 HOUR IF NEEDED OR 5MG ...
     Route: 065
     Dates: start: 20250515, end: 20250919
  21. OXYCODONE HYDROCHLORIDE [Concomitant]
     Active Substance: OXYCODONE HYDROCHLORIDE
     Indication: Ill-defined disorder
     Dosage: JUST IN CASE PRESCRIPTION - 1-2MG WHEN REQUIRED...
     Route: 065
     Dates: start: 20250515, end: 20250919
  22. WATER [Concomitant]
     Active Substance: WATER
     Indication: Ill-defined disorder
     Dosage: USE AS DIRECTED FOR JIC MEDS
     Route: 065
     Dates: start: 20250515, end: 20250919
  23. DOCUSATE SODIUM [Concomitant]
     Active Substance: DOCUSATE SODIUM
     Indication: Ill-defined disorder
     Dosage: TAKE ONE TWICE A DAY
     Route: 065
     Dates: start: 20250617, end: 20250916
  24. Balneum [Concomitant]
     Indication: Ill-defined disorder
     Dosage: APPLY TWICE DAILY
     Route: 065
     Dates: start: 20250617, end: 20250919
  25. BUPRENORPHINE [Concomitant]
     Active Substance: BUPRENORPHINE
     Indication: Ill-defined disorder
     Dosage: APPY ONE PATCH EACH WEEK, AND REMOVE OLD PATCH
     Route: 065
     Dates: start: 20250916, end: 20250919

REACTIONS (6)
  - Dysphagia [Unknown]
  - Dysarthria [Unknown]
  - Death [Fatal]
  - Somnolence [Not Recovered/Not Resolved]
  - Balance disorder [Unknown]
  - Fall [Unknown]

NARRATIVE: CASE EVENT DATE: 20250716
